FAERS Safety Report 4894842-6 (Version None)
Quarter: 2006Q1

REPORT INFORMATION
  Report Type: 
  Country: None (occurrence: None)
  Receive Date: 20060124
  Receipt Date: 20060113
  Transmission Date: 20060701
  Serious: Yes (Other)
  Sender: FDA-Public Use
  Company Number: 13232

PATIENT

DRUGS (2)
  1. METHOTREXATE [Suspect]
     Indication: GASTRIC CANCER
     Dates: start: 20051201
  2. FLUOROURACIL [Suspect]
     Indication: GASTRIC CANCER
     Dates: start: 20051201

REACTIONS (1)
  - BLOOD ALKALINE PHOSPHATASE INCREASED [None]
